FAERS Safety Report 5361355-7 (Version None)
Quarter: 2007Q2

REPORT INFORMATION
  Report Type: 
  Country: None (occurrence: None)
  Receive Date: 20070612
  Receipt Date: 20070605
  Transmission Date: 20071010
  Serious: Yes (Disabling)
  Sender: FDA-Public Use
  Company Number: CIP07001049

PATIENT
  Age: 73 Year
  Sex: Female

DRUGS (2)
  1. ACTONEL [Suspect]
     Indication: OSTEOPOROSIS
     Dosage: 35 MG ONCE WEEKLY, ORAL
     Route: 048
     Dates: start: 20031001
  2. VITAMIN B /00056102/ (THIAMINE HYDROCHLORIDE) [Concomitant]

REACTIONS (4)
  - CONDITION AGGRAVATED [None]
  - GROIN PAIN [None]
  - OSTEONECROSIS [None]
  - RADICULOPATHY [None]
